FAERS Safety Report 24712870 (Version 1)
Quarter: 2024Q4

REPORT INFORMATION
  Report Type: Spontaneous
  Country: US (occurrence: None)
  Receive Date: 20241207
  Receipt Date: 20241207
  Transmission Date: 20250115
  Serious: Yes (Life-Threatening, Hospitalization, Disabling, Other)
  Sender: Public
  Company Number: None

PATIENT
  Age: 36 Year
  Sex: Male

DRUGS (5)
  1. VIAGRA [Suspect]
     Active Substance: SILDENAFIL CITRATE
     Dosage: 6 TABLETS ORAL
     Route: 048
  2. FMITIDINE [Concomitant]
  3. IBUPROFEN [Concomitant]
     Active Substance: IBUPROFEN
  4. SUMATRIPTAN [Concomitant]
     Active Substance: SUMATRIPTAN
  5. POLYETHYLENE GLYCOL 3350 [Concomitant]
     Active Substance: POLYETHYLENE GLYCOL 3350

REACTIONS (5)
  - Priapism [None]
  - Anorgasmia [None]
  - Ulcer [None]
  - Migraine with aura [None]
  - Insomnia [None]
